FAERS Safety Report 12944427 (Version 2)
Quarter: 2017Q1

REPORT INFORMATION
  Report Type: Report from Study
  Country: None (occurrence: US)
  Receive Date: 20161115
  Receipt Date: 20170106
  Transmission Date: 20170428
  Serious: Yes (Other)
  Sender: FDA-Public Use
  Company Number: US-ABBVIE-16K-163-1777821-00

PATIENT
  Age: 22 Year
  Sex: Female
  Weight: 99.88 kg

DRUGS (4)
  1. METHOTREXATE. [Concomitant]
     Active Substance: METHOTREXATE
     Indication: PSORIATIC ARTHROPATHY
  2. HUMIRA [Suspect]
     Active Substance: ADALIMUMAB
     Indication: PSORIATIC ARTHROPATHY
     Route: 058
     Dates: start: 201002, end: 201003
  3. HUMIRA [Suspect]
     Active Substance: ADALIMUMAB
     Indication: PSORIASIS
     Route: 058
     Dates: start: 201602, end: 201604
  4. TOPAMAX [Concomitant]
     Active Substance: TOPIRAMATE
     Indication: PRODUCT USED FOR UNKNOWN INDICATION

REACTIONS (9)
  - Device dislocation [Recovering/Resolving]
  - Carotid bruit [Not Recovered/Not Resolved]
  - Bone erosion [Recovering/Resolving]
  - Tendonitis [Recovering/Resolving]
  - Exostosis [Recovering/Resolving]
  - Hypoaesthesia [Recovered/Resolved]
  - Glaucoma [Not Recovered/Not Resolved]
  - Dry eye [Recovering/Resolving]
  - Medical device pain [Recovering/Resolving]

NARRATIVE: CASE EVENT DATE: 201003
